FAERS Safety Report 19119669 (Version 1)
Quarter: 2021Q2

REPORT INFORMATION
  Report Type: Spontaneous
  Country: IR (occurrence: IR)
  Receive Date: 20210412
  Receipt Date: 20210412
  Transmission Date: 20210717
  Serious: Yes (Death, Other)
  Sender: FDA-Public Use
  Company Number: IR-BEH-2021130377

PATIENT
  Age: 55 Year
  Sex: Male

DRUGS (7)
  1. LOPINAVIR/RITONAVIR RANBAXY [Suspect]
     Active Substance: LOPINAVIR\RITONAVIR
     Indication: ANTIVIRAL TREATMENT
     Dosage: 400/100 MG
     Route: 065
  2. DEXAMETHASONE ACETATE [Suspect]
     Active Substance: DEXAMETHASONE ACETATE
     Indication: ANTIINFLAMMATORY THERAPY
     Route: 065
  3. FAVIPIRAVIR [Suspect]
     Active Substance: FAVIPIRAVIR
     Indication: PRODUCT USED FOR UNKNOWN INDICATION
     Route: 065
  4. HUMAN IMMUNOGLOBULIN (INN) [Suspect]
     Active Substance: HUMAN IMMUNOGLOBULIN G
     Indication: HYPOXIA
  5. CHLOROQUINE [CHLOROQUINE HYDROCHLORIDE] [Suspect]
     Active Substance: CHLOROQUINE HYDROCHLORIDE
     Indication: SUSPECTED COVID-19
     Dosage: 400 MILLIGRAM, QD
     Route: 065
  6. INTERFERONUM BETA?1A ADNR [Suspect]
     Active Substance: INTERFERON BETA-1A
     Indication: ANTIINFLAMMATORY THERAPY
     Route: 065
  7. HUMAN IMMUNOGLOBULIN (INN) [Suspect]
     Active Substance: HUMAN IMMUNOGLOBULIN G
     Indication: SUSPECTED COVID-19
     Dosage: 30 MILLIGRAM, QD
     Route: 042

REACTIONS (2)
  - Off label use [Fatal]
  - Drug ineffective for unapproved indication [Fatal]
